FAERS Safety Report 25771767 (Version 3)
Quarter: 2025Q4

REPORT INFORMATION
  Report Type: Report from Study
  Country: US (occurrence: US)
  Receive Date: 20250908
  Receipt Date: 20251120
  Transmission Date: 20260117
  Serious: Yes (Other)
  Sender: ACADIA PHARMACEUTICALS
  Company Number: US-ACADIA PHARMACEUTICALS INC.-ACA-2025-PIM-009899

PATIENT
  Sex: Male

DRUGS (1)
  1. NUPLAZID [Suspect]
     Active Substance: PIMAVANSERIN TARTRATE
     Indication: Parkinson^s disease psychosis
     Dosage: 34 MILLIGRAM, QD (EVERY EVENING), TAKE 1 CAPSULE BY MOUTH EVERY NIGHT AT BEDTIME
     Route: 048
     Dates: start: 20240426

REACTIONS (3)
  - Hallucination [Unknown]
  - Condition aggravated [Unknown]
  - Confusional state [Unknown]
